FAERS Safety Report 24889810 (Version 1)
Quarter: 2025Q1

REPORT INFORMATION
  Report Type: Spontaneous
  Country: CN (occurrence: CN)
  Receive Date: 20250127
  Receipt Date: 20250127
  Transmission Date: 20250409
  Serious: Yes (Hospitalization)
  Sender: BRACCO
  Company Number: CN-BRACCO-2025CN00347

PATIENT
  Age: 33 Year
  Sex: Female

DRUGS (3)
  1. SULPHUR HEXAFLUORIDE [Suspect]
     Active Substance: SULFUR HEXAFLUORIDE
     Indication: Ultrasound thyroid
     Route: 042
     Dates: start: 20250114, end: 20250114
  2. SULPHUR HEXAFLUORIDE [Suspect]
     Active Substance: SULFUR HEXAFLUORIDE
     Indication: Ultrasound thyroid
     Route: 042
     Dates: start: 20250114, end: 20250114
  3. SULPHUR HEXAFLUORIDE [Suspect]
     Active Substance: SULFUR HEXAFLUORIDE
     Indication: Ultrasound thyroid
     Route: 042
     Dates: start: 20250114, end: 20250114

REACTIONS (2)
  - Pruritus [Recovering/Resolving]
  - Off label use [Recovered/Resolved]

NARRATIVE: CASE EVENT DATE: 20250114
